FAERS Safety Report 7986404-9 (Version None)
Quarter: 2011Q4

REPORT INFORMATION
  Report Type: 
  Country: None (occurrence: None)
  Receive Date: 20111216
  Receipt Date: 20110914
  Transmission Date: 20120403
  Serious: No
  Sender: FDA-Public Use
  Company Number: US-GLAXOSMITHKLINE-A0944631A

PATIENT
  Age: 73 Year
  Sex: Female

DRUGS (8)
  1. ASPIRIN [Concomitant]
  2. COREG CR [Suspect]
     Indication: PRODUCT USED FOR UNKNOWN INDICATION
     Dosage: 20MG UNKNOWN
     Route: 048
     Dates: start: 20110707, end: 20110816
  3. BENICAR [Concomitant]
  4. FUROSEMIDE [Concomitant]
  5. THYROID TAB [Concomitant]
  6. SPIRONOLACTONE [Concomitant]
  7. PLAVIX [Concomitant]
  8. LIPITOR [Concomitant]

REACTIONS (1)
  - FATIGUE [None]
